FAERS Safety Report 8214979-3 (Version None)
Quarter: 2012Q1

REPORT INFORMATION
  Report Type: 
  Country: None (occurrence: None)
  Receive Date: 20120316
  Receipt Date: 20120312
  Transmission Date: 20120608
  Serious: Yes (Other)
  Sender: FDA-Public Use
  Company Number: FR-JNJFOC-20120303115

PATIENT
  Age: 24 Year
  Sex: Female

DRUGS (1)
  1. TRAMADOL HYDROCHLORIDE [Suspect]
     Indication: MIGRAINE
     Dosage: ONCE A DAY FOR A YEAR
     Route: 048

REACTIONS (2)
  - DEPENDENCE [None]
  - MATERNAL EXPOSURE DURING PREGNANCY [None]
